FAERS Safety Report 16943855 (Version 7)
Quarter: 2020Q3

REPORT INFORMATION
  Report Type: Other
  Country: DE (occurrence: DE)
  Receive Date: 20191022
  Receipt Date: 20200923
  Transmission Date: 20201102
  Serious: Yes (Other)
  Sender: FDA-Public Use
  Company Number: DE-ROCHE-2442808

PATIENT
  Age: 40 Year
  Sex: Male
  Weight: 87 kg

DRUGS (8)
  1. VITAMIN K2 [Concomitant]
     Active Substance: MENAQUINONE 6
  2. VITAMIN D3 [Concomitant]
     Active Substance: CHOLECALCIFEROL
  3. VITAMIN D [Concomitant]
     Active Substance: VITAMIN D NOS
     Dosage: 20000 IU
  4. CANDESARTAN. [Concomitant]
     Active Substance: CANDESARTAN
  5. OCREVUS [Suspect]
     Active Substance: OCRELIZUMAB
     Indication: PRIMARY PROGRESSIVE MULTIPLE SCLEROSIS
     Route: 065
     Dates: start: 201810
  6. OCREVUS [Suspect]
     Active Substance: OCRELIZUMAB
     Indication: RELAPSING-REMITTING MULTIPLE SCLEROSIS
     Dosage: DATE OF TREATMENT: /OCT/2018?LAST DOSE RECEIVED ON 10/OCT/2019.
     Route: 065
     Dates: start: 20180329
  7. CARVEDILOL. [Concomitant]
     Active Substance: CARVEDILOL
  8. OCREVUS [Suspect]
     Active Substance: OCRELIZUMAB
     Route: 042
     Dates: start: 202004

REACTIONS (6)
  - Anaphylactic shock [Recovered/Resolved]
  - Decreased appetite [Not Recovered/Not Resolved]
  - Irritability [Not Recovered/Not Resolved]
  - Weight increased [Not Recovered/Not Resolved]
  - Depressed mood [Not Recovered/Not Resolved]
  - Blood immunoglobulin M decreased [Not Recovered/Not Resolved]

NARRATIVE: CASE EVENT DATE: 201810
